FAERS Safety Report 4643435-4 (Version None)
Quarter: 2005Q2

REPORT INFORMATION
  Report Type: 
  Country: None (occurrence: None)
  Receive Date: 20050420
  Receipt Date: 20050420
  Transmission Date: 20051028
  Serious: No
  Sender: FDA-Public Use
  Company Number: None

PATIENT
  Sex: Female
  Weight: 58.9676 kg

DRUGS (1)
  1. EFFEXOR [Suspect]
     Indication: DEPRESSION
     Dosage: 175  1 TIME A DAY ORAL
     Route: 048
     Dates: start: 20040101, end: 20050414

REACTIONS (6)
  - DRUG WITHDRAWAL SYNDROME [None]
  - EXTRASYSTOLES [None]
  - FEELING ABNORMAL [None]
  - MUSCLE SPASMS [None]
  - NAUSEA [None]
  - PHOTOPSIA [None]
